FAERS Safety Report 25383073 (Version 1)
Quarter: 2025Q2

REPORT INFORMATION
  Report Type: Spontaneous
  Country: US (occurrence: US)
  Receive Date: 20250602
  Receipt Date: 20250602
  Transmission Date: 20250716
  Serious: No
  Sender: BIOGEN
  Company Number: US-BIOGEN-2025BI01312612

PATIENT
  Sex: Male

DRUGS (1)
  1. VUMERITY [Suspect]
     Active Substance: DIROXIMEL FUMARATE
     Indication: Multiple sclerosis
     Route: 050
     Dates: start: 20210616

REACTIONS (4)
  - Intervertebral disc protrusion [Unknown]
  - Ligament rupture [Unknown]
  - Arthralgia [Unknown]
  - Back pain [Unknown]
